FAERS Safety Report 11156205 (Version 1)
Quarter: 2015Q2

REPORT INFORMATION
  Report Type: Spontaneous
  Country: US (occurrence: None)
  Receive Date: 20150601
  Receipt Date: 20150601
  Transmission Date: 20150821
  Serious: Yes (Other)
  Sender: FDA-Public Use
  Company Number: None

PATIENT
  Age: 69 Year
  Sex: Female

DRUGS (1)
  1. JAKAFI [Suspect]
     Active Substance: RUXOLITINIB
     Indication: LYMPHOMA
     Route: 048
     Dates: start: 20150211, end: 20150528

REACTIONS (1)
  - Weight increased [None]

NARRATIVE: CASE EVENT DATE: 20150408
